FAERS Safety Report 8935558 (Version 3)
Quarter: 2012Q4

REPORT INFORMATION
  Report Type: 
  Country: JP (occurrence: JP)
  Receive Date: 20121130
  Receipt Date: 20121227
  Transmission Date: 20130627
  Serious: Yes (Hospitalization, Other)
  Sender: FDA-Public Use
  Company Number: PHHY2012JP109615

PATIENT
  Age: 79 Year
  Sex: Male

DRUGS (2)
  1. ZOMETA [Suspect]
     Indication: METASTASES TO BONE
     Dosage: UNK UKN, UNK
     Route: 041
     Dates: start: 2003
  2. PROSEXOL [Concomitant]
     Dosage: UNK UKN, UNK
     Route: 048
     Dates: start: 2003

REACTIONS (8)
  - Osteonecrosis of jaw [Recovered/Resolved]
  - Periodontitis [Unknown]
  - Oral pain [Unknown]
  - Eating disorder [Unknown]
  - Pain in jaw [Unknown]
  - Inflammation [Unknown]
  - Purulent discharge [Unknown]
  - Fear [Unknown]
